FAERS Safety Report 6431731-X (Version None)
Quarter: 2009Q4

REPORT INFORMATION
  Report Type: 
  Country: None (occurrence: None)
  Receive Date: 20091104
  Receipt Date: 20091026
  Transmission Date: 20100525
  Serious: Yes (Other)
  Sender: FDA-Public Use
  Company Number: 232886K09USA

PATIENT
  Age: 63 Year
  Sex: Female

DRUGS (7)
  1. REBIF [Suspect]
     Indication: MULTIPLE SCLEROSIS
     Dosage: 44 MCG, 3 IN 1 WEEKS, SUBCUTANEOUS
     Route: 058
     Dates: start: 20080509
  2. NEURONTIN [Concomitant]
  3. ZANAFLEX [Concomitant]
  4. COUMADIN [Concomitant]
  5. REMERON [Concomitant]
  6. FENTANYL [Concomitant]
  7. CELEXA [Concomitant]

REACTIONS (1)
  - BREAST SARCOMA [None]
